FAERS Safety Report 17535954 (Version 1)
Quarter: 2020Q1

REPORT INFORMATION
  Report Type: Spontaneous
  Country: DE (occurrence: DE)
  Receive Date: 20200313
  Receipt Date: 20200313
  Transmission Date: 20200409
  Serious: Yes (Life-Threatening, Hospitalization, Other)
  Sender: FDA-Public Use
  Company Number: DE-SA-2020SA063086

PATIENT
  Age: 85 Year
  Sex: Male

DRUGS (7)
  1. RAMIPRIL. [Concomitant]
     Active Substance: RAMIPRIL
     Dosage: 2.5 MG, QD(1-0-0-0)
     Route: 065
  2. CARBIDOPA/LEVODOPA [Concomitant]
     Active Substance: CARBIDOPA\LEVODOPA
     Dosage: 25|100 MG, 1-0-0-1
     Route: 065
  3. INSULIN HUMAN;ISOPHANE INSULIN [Concomitant]
     Active Substance: INSULIN HUMAN
     Dosage: 20-0-10-0
     Route: 065
  4. CLOPIDOGREL BISULFATE. [Suspect]
     Active Substance: CLOPIDOGREL BISULFATE
     Dosage: 75 MG, QD(1-0-0-0)
     Route: 065
  5. ATORVASTATIN [Concomitant]
     Active Substance: ATORVASTATIN
     Dosage: 20 MG, QD(0-0-1-0)
     Route: 065
  6. METOPROLOL. [Concomitant]
     Active Substance: METOPROLOL
     Dosage: 23.75 MG, BID(1-0-1-0)
     Route: 065
  7. FINASTERID [Concomitant]
     Active Substance: FINASTERIDE
     Dosage: 5 MG, QD(0-0-0-1)
     Route: 065

REACTIONS (3)
  - Fine motor skill dysfunction [Unknown]
  - Haemorrhage intracranial [Unknown]
  - Muscular weakness [Unknown]
